FAERS Safety Report 17646390 (Version 1)
Quarter: 2020Q2

REPORT INFORMATION
  Report Type: Spontaneous
  Country: US (occurrence: US)
  Receive Date: 20200408
  Receipt Date: 20200408
  Transmission Date: 20200713
  Serious: Yes (Hospitalization)
  Sender: FDA-Public Use
  Company Number: US-MYLANLABS-2020M1035313

PATIENT
  Age: 78 Year
  Sex: Male

DRUGS (1)
  1. HEPARIN [Suspect]
     Active Substance: HEPARIN SODIUM
     Indication: ACUTE MYOCARDIAL INFARCTION
     Dosage: UNK
     Route: 065

REACTIONS (6)
  - Peripheral artery occlusion [Unknown]
  - Pulmonary embolism [Unknown]
  - Heparin-induced thrombocytopenia [Unknown]
  - Aortic thrombosis [Unknown]
  - Graft loss [Unknown]
  - Angina unstable [Unknown]
